FAERS Safety Report 21054630 (Version 1)
Quarter: 2022Q3

REPORT INFORMATION
  Report Type: Spontaneous
  Country: US (occurrence: US)
  Receive Date: 20220707
  Receipt Date: 20220707
  Transmission Date: 20221027
  Serious: Yes (Hospitalization, Other)
  Sender: FDA-Public Use
  Company Number: US-PFIZER INC-202200931765

PATIENT
  Age: 62 Year
  Sex: Female
  Weight: 69.85 kg

DRUGS (1)
  1. PRISTIQ EXTENDED-RELEASE [Suspect]
     Active Substance: DESVENLAFAXINE SUCCINATE
     Indication: Depression
     Dosage: 50 MG, 1X/DAY (WAS TAKING HALF A DAY FOR THE 100MG DOSE)
     Dates: end: 202110

REACTIONS (6)
  - Illness [Recovered/Resolved]
  - Crying [Recovered/Resolved]
  - Breast cancer [Unknown]
  - Anxiety [Unknown]
  - Wrong technique in product usage process [Unknown]
  - Nervousness [Unknown]

NARRATIVE: CASE EVENT DATE: 20211001
